FAERS Safety Report 5464032-7 (Version None)
Quarter: 2007Q3

REPORT INFORMATION
  Report Type: 
  Country: None (occurrence: None)
  Receive Date: 20070919
  Receipt Date: 20070910
  Transmission Date: 20080115
  Serious: Yes (Other)
  Sender: FDA-Public Use
  Company Number: 17418

PATIENT

DRUGS (3)
  1. METHYLENE BLUE [Suspect]
     Indication: VASOPLEGIA SYNDROME
     Dosage: 2 MG/KG PU
  2. NOREPINEPHRINE [Concomitant]
  3. VASOPRESSIN [Concomitant]

REACTIONS (1)
  - LABORATORY TEST INTERFERENCE [None]
